FAERS Safety Report 14152307 (Version 4)
Quarter: 2019Q3

REPORT INFORMATION
  Report Type: Spontaneous
  Country: JP (occurrence: JP)
  Receive Date: 20171102
  Receipt Date: 20190731
  Transmission Date: 20191004
  Serious: Yes (Hospitalization, Other)
  Sender: FDA-Public Use
  Company Number: JP-BRISTOL-MYERS SQUIBB COMPANY-BMS-2017-098415

PATIENT
  Age: 71 Year
  Sex: Female
  Weight: 44.9 kg

DRUGS (2)
  1. OPDIVO [Suspect]
     Active Substance: NIVOLUMAB
     Indication: NON-SMALL CELL LUNG CANCER RECURRENT
     Dosage: 3 MILLIGRAM/KILOGRAM
     Route: 041
     Dates: start: 20160902
  2. ROZEUS [Concomitant]
     Active Substance: VINORELBINE TARTRATE
     Indication: NON-SMALL CELL LUNG CANCER RECURRENT
     Dosage: UNK
     Route: 065

REACTIONS (1)
  - Cholangitis sclerosing [Recovering/Resolving]

NARRATIVE: CASE EVENT DATE: 20170606
